FAERS Safety Report 4404838-6 (Version None)
Quarter: 2004Q3

REPORT INFORMATION
  Report Type: 
  Country: None (occurrence: None)
  Receive Date: 20040716
  Receipt Date: 20040701
  Transmission Date: 20050211
  Serious: Yes (Hospitalization)
  Sender: FDA-Public Use
  Company Number: 200848

PATIENT
  Age: 36 Year
  Sex: Female
  Weight: 69.4003 kg

DRUGS (6)
  1. AVONEX [Suspect]
     Indication: MULTIPLE SCLEROSIS
     Dosage: 30 MCG QW IM
     Route: 030
     Dates: start: 19960101, end: 20030101
  2. AVONEX [Suspect]
     Dosage: 30 MCG QW IM
     Route: 030
     Dates: start: 20030101
  3. XANAX [Concomitant]
  4. INDERAL [Concomitant]
  5. BACLOFEN [Concomitant]
  6. ASPIRIN [Concomitant]

REACTIONS (10)
  - ANAEMIA [None]
  - BLOOD CHOLESTEROL INCREASED [None]
  - DEPRESSION [None]
  - HOT FLUSH [None]
  - INFLUENZA LIKE ILLNESS [None]
  - MOOD SWINGS [None]
  - MUSCLE SPASMS [None]
  - OPERATIVE HAEMORRHAGE [None]
  - POLYMENORRHOEA [None]
  - PREMATURE MENOPAUSE [None]
